FAERS Safety Report 12601570 (Version 2)
Quarter: 2016Q3

REPORT INFORMATION
  Report Type: Report from Study
  Country: IT (occurrence: IT)
  Receive Date: 20160728
  Receipt Date: 20160812
  Transmission Date: 20161109
  Serious: Yes (Death)
  Sender: FDA-Public Use
  Company Number: PHHY2016IT102882

PATIENT
  Sex: Male

DRUGS (3)
  1. PEMBROLIZUMAB. [Concomitant]
     Active Substance: PEMBROLIZUMAB
     Indication: PRODUCT USED FOR UNKNOWN INDICATION
     Dosage: 2 MG/KG FOR 06 CYCLES
     Route: 065
     Dates: start: 201504
  2. TRAMETINIB [Suspect]
     Active Substance: TRAMETINIB
     Indication: METASTATIC MALIGNANT MELANOMA
     Dosage: 2 MG AND 0.5 MG FOR 2 OR 3
     Route: 048
     Dates: start: 20141015, end: 20150830
  3. DABRAFENIB [Suspect]
     Active Substance: DABRAFENIB
     Indication: METASTATIC MALIGNANT MELANOMA
     Dosage: 50MG AND 75MG, THE DOSE WAS REDUCED TO ALTERNATING DOSES
     Route: 048
     Dates: start: 20141015, end: 20150830

REACTIONS (1)
  - Malignant neoplasm progression [Fatal]
